FAERS Safety Report 21566328 (Version 1)
Quarter: 2022Q4

REPORT INFORMATION
  Report Type: Spontaneous
  Country: DE (occurrence: DE)
  Receive Date: 20221108
  Receipt Date: 20221108
  Transmission Date: 20230113
  Serious: Yes (Hospitalization)
  Sender: FDA-Public Use
  Company Number: DE-ADRED-05247-02

PATIENT
  Age: 90 Year
  Sex: Female
  Weight: 57.3 kg

DRUGS (7)
  1. LORAZEPAM [Suspect]
     Active Substance: LORAZEPAM
     Indication: Product used for unknown indication
     Dosage: 0.5 MILLIGRAM (0.5 MG, 0-0-1-0, TABLET)
     Route: 048
  2. TAPENTADOL [Suspect]
     Active Substance: TAPENTADOL
     Indication: Product used for unknown indication
     Dosage: 50 MILLIGRAM (50 MG, 1-0-1-0, RETARD-TABLET)
     Route: 048
  3. TORSEMIDE [Concomitant]
     Active Substance: TORSEMIDE
     Dosage: 5 MILLIGRAM (5 MG, 2-2-0-0, TABLET)
     Route: 048
  4. PANTOPRAZOLE SODIUM [Concomitant]
     Active Substance: PANTOPRAZOLE SODIUM
     Dosage: 40 MILLIGRAM (40 MG, 1-0-0-0, TABLET)
     Route: 048
  5. ASPIRIN [Concomitant]
     Active Substance: ASPIRIN
     Dosage: 100 MILLIGRAM (100 MG, 0-1-0-0, TABLET)
     Route: 048
  6. SICCAPROTECT [Concomitant]
     Dosage: 1-1-1-0, DROPS
  7. THIAMINE [Concomitant]
     Active Substance: THIAMINE
     Dosage: 200 MILLIGRAM (200 MG, 1-0-0-0, TABLET)
     Route: 048

REACTIONS (3)
  - Depressed mood [Unknown]
  - Product prescribing error [Unknown]
  - Dizziness [Unknown]
